FAERS Safety Report 9547096 (Version 1)
Quarter: 2013Q3

REPORT INFORMATION
  Report Type: Report from Study
  Country: BR (occurrence: BR)
  Receive Date: 20130924
  Receipt Date: 20130924
  Transmission Date: 20140515
  Serious: Yes (Disabling, Other)
  Sender: FDA-Public Use
  Company Number: PHHY2013BR105335

PATIENT
  Age: 88 Year
  Sex: Female

DRUGS (9)
  1. INDACATEROL [Suspect]
     Indication: CHRONIC OBSTRUCTIVE PULMONARY DISEASE
     Dosage: 150 UG, PER DAY
     Dates: start: 201208
  2. TIOTROPIUM [Concomitant]
     Dosage: 1 DF, QD
  3. OMEPRAZOLE [Concomitant]
     Dosage: UNK UKN, UNK
  4. BROMOPRIDE [Concomitant]
     Dosage: UNK UKN, UNK
  5. AKTIVON GLUCOSAMINE CHONDROITIN [Concomitant]
     Dosage: UNK UKN, UNK
  6. SERTRALINE [Concomitant]
     Dosage: UNK UKN, UNK
  7. METOPROLOL [Concomitant]
     Dosage: 50 MG, UNK
  8. LEVOFLOXACIN [Concomitant]
  9. OXYGEN [Concomitant]

REACTIONS (4)
  - Osteoarthritis [Unknown]
  - Pain [Unknown]
  - Mobility decreased [Unknown]
  - Total lung capacity decreased [Unknown]
